FAERS Safety Report 4957699-0 (Version None)
Quarter: 2006Q1

REPORT INFORMATION
  Report Type: 
  Country: None (occurrence: None)
  Receive Date: 20060330
  Receipt Date: 20060320
  Transmission Date: 20060701
  Serious: Yes (Hospitalization)
  Sender: FDA-Public Use
  Company Number: DE-JNJFOC-20060304832

PATIENT
  Sex: Female

DRUGS (7)
  1. DURAGESIC-100 [Suspect]
     Route: 062
  2. NORVASC [Concomitant]
     Route: 065
  3. SAROTEN [Concomitant]
     Route: 065
  4. ZOCOR [Concomitant]
     Route: 065
  5. TETRAZEPAM [Concomitant]
     Route: 065
  6. CELEBREX [Concomitant]
     Route: 065
  7. LACTULOSE [Concomitant]

REACTIONS (2)
  - POOR QUALITY DRUG ADMINISTERED [None]
  - SCHIZOAFFECTIVE DISORDER [None]
